FAERS Safety Report 8968919 (Version 1)
Quarter: 2012Q4

REPORT INFORMATION
  Report Type: 
  Country: PH (occurrence: PH)
  Receive Date: 20121217
  Receipt Date: 20121217
  Transmission Date: 20130627
  Serious: Yes (Death, Hospitalization)
  Sender: FDA-Public Use
  Company Number: PH-BAXTER-2012BAX027164

PATIENT
  Sex: Female

DRUGS (1)
  1. DIANEAL PD2 WITH 1.5% DEXTROSE [Suspect]
     Indication: CAPD
     Route: 033
     Dates: start: 20121119

REACTIONS (2)
  - Coronary artery disease [Fatal]
  - Atrial septal defect [Fatal]
